FAERS Safety Report 4408308-0 (Version None)
Quarter: 2004Q3

REPORT INFORMATION
  Report Type: 
  Country: None (occurrence: None)
  Receive Date: 20040726
  Receipt Date: 20040726
  Transmission Date: 20050211
  Serious: Yes (Hospitalization)
  Sender: FDA-Public Use
  Company Number: None

PATIENT
  Age: 50 Year
  Sex: Male

DRUGS (4)
  1. APROTININ [Suspect]
     Indication: CORONARY ARTERY SURGERY
     Dosage: 200CC IV OVER 30 MI AND OVER 4 HR.
     Route: 042
     Dates: start: 20040127
  2. . [Concomitant]
  3. LASIX [Concomitant]
  4. LISINOPRIL [Concomitant]

REACTIONS (4)
  - ANGINA UNSTABLE [None]
  - HYPOTENSION [None]
  - POST PROCEDURAL COMPLICATION [None]
  - VASCULAR GRAFT OCCLUSION [None]
